FAERS Safety Report 5965744-9 (Version None)
Quarter: 2008Q4

REPORT INFORMATION
  Report Type: 
  Country: None (occurrence: None)
  Receive Date: 20081125
  Receipt Date: 20081121
  Transmission Date: 20090506
  Serious: Yes (Other)
  Sender: FDA-Public Use
  Company Number: B0544466A

PATIENT
  Age: 27 Year
  Sex: Male

DRUGS (6)
  1. ARRANON [Suspect]
     Dosage: 2175MG PER DAY
     Route: 042
     Dates: start: 20081011
  2. PREDONINE [Concomitant]
     Dates: start: 20081001
  3. PREDONINE [Concomitant]
     Dosage: 30MG PER DAY
     Route: 048
     Dates: start: 20081011
  4. UNKNOWN DRUG [Concomitant]
     Indication: INFECTION PROPHYLAXIS
     Route: 048
     Dates: start: 20081004
  5. FLUCONAZOLE [Concomitant]
     Indication: GASTROINTESTINAL ULCER
     Dosage: 10MG PER DAY
     Route: 048
     Dates: start: 20081004
  6. RABEPRAZOLE SODIUM [Concomitant]
     Dosage: 10MG PER DAY
     Route: 048
     Dates: start: 20081004

REACTIONS (1)
  - LIVER DISORDER [None]
